FAERS Safety Report 6198567-9 (Version None)
Quarter: 2009Q2

REPORT INFORMATION
  Report Type: 
  Country: None (occurrence: None)
  Receive Date: 20090521
  Receipt Date: 20090511
  Transmission Date: 20091009
  Serious: Yes (Other)
  Sender: FDA-Public Use
  Company Number: CA-JNJCH-2009013165

PATIENT
  Sex: Female

DRUGS (1)
  1. LISTERINE WHITENING DISOLVING STRIPS [Suspect]
     Indication: DRUG USE FOR UNKNOWN INDICATION
     Dosage: TEXT:2 DAYS TWICE DAILY THEN ONCE DAILY
     Route: 048
     Dates: start: 20090506, end: 20090509

REACTIONS (6)
  - APPLICATION SITE EROSION [None]
  - HYPERSENSITIVITY [None]
  - LIP PAIN [None]
  - LIP SWELLING [None]
  - ORAL PAIN [None]
  - STOMATITIS [None]
